FAERS Safety Report 11634732 (Version 1)
Quarter: 2015Q4

REPORT INFORMATION
  Report Type: Spontaneous
  Country: US (occurrence: US)
  Receive Date: 20151015
  Receipt Date: 20151015
  Transmission Date: 20160304
  Serious: No
  Sender: FDA-Public Use
  Company Number: US-INDIVIOR-RB-075452-2015

PATIENT
  Age: 45 Year
  Sex: Male

DRUGS (1)
  1. SUBOXONE [Suspect]
     Active Substance: BUPRENORPHINE HYDROCHLORIDE\NALOXONE HYDROCHLORIDE
     Indication: DEPRESSION
     Dosage: UNK
     Route: 065

REACTIONS (4)
  - Expired product administered [Not Recovered/Not Resolved]
  - Oral administration complication [Not Recovered/Not Resolved]
  - Off label use [Not Recovered/Not Resolved]
  - Extra dose administered [Not Recovered/Not Resolved]
